FAERS Safety Report 21576341 (Version 1)
Quarter: 2022Q4

REPORT INFORMATION
  Report Type: Spontaneous
  Country: US (occurrence: None)
  Receive Date: 20221109
  Receipt Date: 20221109
  Transmission Date: 20230113
  Serious: No
  Sender: FDA-Public Use
  Company Number: None

PATIENT
  Age: 71 Year
  Sex: Female
  Weight: 55.52 kg

DRUGS (9)
  1. CAPECITABINE [Suspect]
     Active Substance: CAPECITABINE
     Indication: Breast cancer female
     Dosage: OTHER FREQUENCY : Q12HOURS ;?
     Route: 048
     Dates: start: 202209
  2. CALCIUM 500+D [Concomitant]
  3. GABAPENTIN [Concomitant]
  4. LEVOTHYROXINE [Concomitant]
  5. LISINOPRIL [Concomitant]
  6. LOMOTIL [Concomitant]
  7. MAGNESIUM [Concomitant]
  8. NORCO [Concomitant]
  9. ZOFRAN [Concomitant]

REACTIONS (1)
  - Hospice care [None]
